FAERS Safety Report 16063148 (Version 2)
Quarter: 2019Q1

REPORT INFORMATION
  Report Type: Spontaneous
  Country: US (occurrence: US)
  Receive Date: 20190312
  Receipt Date: 20190330
  Transmission Date: 20190418
  Serious: No
  Sender: FDA-Public Use
  Company Number: US-GLAXOSMITHKLINE-US2019041976

PATIENT
  Age: 87 Year
  Sex: Female

DRUGS (1)
  1. DICLOFENAC SODIUM GEL [Suspect]
     Active Substance: DICLOFENAC SODIUM
     Indication: PAIN
     Dosage: UNK
     Dates: start: 20190306

REACTIONS (4)
  - Product package associated injury [Unknown]
  - Product complaint [Unknown]
  - Wrong technique in product usage process [Unknown]
  - Skin laceration [Unknown]

NARRATIVE: CASE EVENT DATE: 20190306
